FAERS Safety Report 5799853-4 (Version None)
Quarter: 2008Q3

REPORT INFORMATION
  Report Type: 
  Country: None (occurrence: None)
  Receive Date: 20080703
  Receipt Date: 20080624
  Transmission Date: 20090109
  Serious: Yes (Other)
  Sender: FDA-Public Use
  Company Number: US-KINGPHARMUSA00001-K200800737

PATIENT

DRUGS (8)
  1. LEVOXYL [Suspect]
     Indication: HYPOTHYROIDISM
     Dosage: UNK MCG, QD
     Route: 048
     Dates: start: 20010101, end: 20070101
  2. LEVOXYL [Suspect]
     Dosage: 150 MCG, QD
     Route: 048
     Dates: start: 20070101, end: 20080606
  3. GABAPENTIN [Suspect]
     Indication: MYALGIA
     Dosage: UNK, QD
     Route: 048
     Dates: start: 20080411, end: 20080415
  4. GABAPENTIN [Suspect]
     Indication: ARTHRALGIA
  5. OSTEO BI-FLEX [Suspect]
     Indication: ARTHRITIS
     Dates: start: 20071201, end: 20080606
  6. CALCIUM [Concomitant]
     Indication: SUPPLEMENTATION THERAPY
     Dosage: UNK, QD
     Dates: start: 20020101
  7. MAGNESIUM [Concomitant]
     Indication: SUPPLEMENTATION THERAPY
     Dates: start: 20020101
  8. ONE-A-DAY                          /01719501/ [Concomitant]
     Indication: SUPPLEMENTATION THERAPY
     Dosage: UNK, QD

REACTIONS (11)
  - ANAEMIA [None]
  - APHTHOUS STOMATITIS [None]
  - ARTHRALGIA [None]
  - FATIGUE [None]
  - HEPATITIS [None]
  - IRIS DISORDER [None]
  - JOINT SWELLING [None]
  - LACRIMAL DISORDER [None]
  - LUPUS-LIKE SYNDROME [None]
  - OEDEMA PERIPHERAL [None]
  - PLEURISY [None]
